FAERS Safety Report 15802128 (Version 1)
Quarter: 2019Q1

REPORT INFORMATION
  Report Type: Spontaneous
  Country: US (occurrence: US)
  Receive Date: 20190108
  Receipt Date: 20190108
  Transmission Date: 20190417
  Serious: Yes (Hospitalization)
  Sender: FDA-Public Use
  Company Number: None

PATIENT
  Age: 74 Year
  Sex: Male
  Weight: 78.3 kg

DRUGS (18)
  1. PREDNISONE. [Concomitant]
     Active Substance: PREDNISONE
  2. IPRATROPIUM NEBS [Concomitant]
  3. BUDESONIDE MDI [Concomitant]
  4. FLUTICASIONE NASAL [Concomitant]
  5. PANTOPRAZOLE [Concomitant]
     Active Substance: PANTOPRAZOLE
  6. CARVEDILOL. [Concomitant]
     Active Substance: CARVEDILOL
  7. LANTUS [Concomitant]
     Active Substance: INSULIN GLARGINE
  8. TRULICITY [Suspect]
     Active Substance: DULAGLUTIDE
     Indication: TYPE 2 DIABETES MELLITUS
     Dosage: ?          OTHER FREQUENCY:WEEKLY;?
     Route: 058
     Dates: start: 20170531, end: 20190101
  9. NEPHRO-VITE [Concomitant]
  10. NOVOLOG [Concomitant]
     Active Substance: INSULIN ASPART
  11. TACROLIMUS. [Concomitant]
     Active Substance: TACROLIMUS
  12. ALBUTEROL NEBS [Concomitant]
  13. CHOLECALCIFEROL [Concomitant]
     Active Substance: CHOLECALCIFEROL
  14. LOSARTAN. [Concomitant]
     Active Substance: LOSARTAN
  15. ASPIRIN. [Concomitant]
     Active Substance: ASPIRIN
  16. MYCOPHENOLATE [Concomitant]
     Active Substance: MYCOPHENOLIC ACID
  17. CETIRIZINE [Concomitant]
     Active Substance: CETIRIZINE HYDROCHLORIDE
  18. ROSUVASTATIN. [Concomitant]
     Active Substance: ROSUVASTATIN

REACTIONS (5)
  - Bacteraemia [None]
  - Transaminases increased [None]
  - Klebsiella infection [None]
  - Escherichia test positive [None]
  - Pancreatitis acute [None]

NARRATIVE: CASE EVENT DATE: 20181224
